FAERS Safety Report 19990068 (Version 1)
Quarter: 2021Q4

REPORT INFORMATION
  Report Type: Report from Study
  Country: None (occurrence: US)
  Receive Date: 20211025
  Receipt Date: 20211025
  Transmission Date: 20220303
  Serious: Yes (Other)
  Sender: FDA-Public Use
  Company Number: US-ABBVIE-21K-163-4131549-00

PATIENT
  Age: 74 Year
  Sex: Male

DRUGS (1)
  1. VENCLEXTA [Suspect]
     Active Substance: VENETOCLAX
     Indication: Acute myeloid leukaemia
     Route: 048
     Dates: start: 202010

REACTIONS (14)
  - Muscle neoplasm [Unknown]
  - Malignant neoplasm of eyelid [Unknown]
  - Eye haemorrhage [Unknown]
  - Visual impairment [Unknown]
  - Haemoglobin abnormal [Recovered/Resolved]
  - White blood cell count abnormal [Recovered/Resolved]
  - Neutrophil count abnormal [Unknown]
  - Haemorrhagic diathesis [Unknown]
  - Platelet count decreased [Unknown]
  - Full blood count abnormal [Recovering/Resolving]
  - Asthenia [Recovering/Resolving]
  - Weight increased [Unknown]
  - Immunodeficiency [Unknown]
  - Diarrhoea [Unknown]

NARRATIVE: CASE EVENT DATE: 20210501
